FAERS Safety Report 8216281-2 (Version None)
Quarter: 2012Q1

REPORT INFORMATION
  Report Type: 
  Country: None (occurrence: None)
  Receive Date: 20120316
  Receipt Date: 20120307
  Transmission Date: 20120608
  Serious: Yes (Other)
  Sender: FDA-Public Use
  Company Number: PHHY2012US021742

PATIENT
  Age: 24 Year
  Sex: Male

DRUGS (2)
  1. TUMOR INFILTRATING LYMPHOCYTES [Concomitant]
     Indication: METASTATIC MALIGNANT MELANOMA
  2. PROLEUKIN [Suspect]
     Indication: METASTATIC MALIGNANT MELANOMA
     Dosage: 8 DF IN TOTAL
     Dates: start: 20120215, end: 20120217

REACTIONS (2)
  - HYPOTENSION [None]
  - DYSPNOEA [None]
